FAERS Safety Report 22275118 (Version 4)
Quarter: 2023Q2

REPORT INFORMATION
  Report Type: Spontaneous
  Country: US (occurrence: US)
  Receive Date: 20230502
  Receipt Date: 20230530
  Transmission Date: 20230721
  Serious: Yes (Other)
  Sender: FDA-Public Use
  Company Number: US-PFIZER INC-2021383740

PATIENT
  Age: 60 Year
  Sex: Male

DRUGS (1)
  1. IBRANCE [Suspect]
     Active Substance: PALBOCICLIB
     Indication: Breast cancer male
     Dosage: 125 MG, DAILY (28-DAY SUPPLY)
     Route: 048

REACTIONS (4)
  - Nephrostomy [Unknown]
  - Neoplasm progression [Unknown]
  - Mental disorder [Unknown]
  - Memory impairment [Unknown]
